FAERS Safety Report 6791328-9 (Version None)
Quarter: 2010Q2

REPORT INFORMATION
  Report Type: 
  Country: None (occurrence: None)
  Receive Date: 20100624
  Receipt Date: 20100621
  Transmission Date: 20101027
  Serious: Yes (Death)
  Sender: FDA-Public Use
  Company Number: JP-BAYER-201012772BYL

PATIENT
  Age: 72 Year
  Sex: Male

DRUGS (7)
  1. CIPROXAN-I.V. [Suspect]
     Indication: PNEUMONIA
     Dosage: TOTAL DAILY DOSE: 600 NG  UNIT DOSE: 300 MG
     Route: 041
     Dates: start: 20080925, end: 20081010
  2. SEISHOKU [Concomitant]
     Dosage: TOTAL DAILY DOSE: 200 ML
     Route: 041
     Dates: start: 20080925, end: 20081010
  3. ELASPOL [Concomitant]
     Route: 042
     Dates: start: 20080902, end: 20081001
  4. UNASYN [Concomitant]
     Indication: PNEUMONIA
     Dosage: TOTAL DAILY DOSE: 3.0 G
     Route: 042
     Dates: start: 20080902, end: 20080908
  5. SULPERAZON [Concomitant]
     Indication: PNEUMONIA
     Dosage: TOTAL DAILY DOSE: 2 G
     Route: 042
     Dates: start: 20080909, end: 20080924
  6. PRODIF [Concomitant]
     Indication: PNEUMONIA
     Dosage: TOTAL DAILY DOSE: 400 MG
     Route: 042
     Dates: start: 20080908, end: 20080924
  7. DEPROMEL [Concomitant]
     Indication: DEPRESSION
     Route: 048
     Dates: start: 20080801

REACTIONS (1)
  - STAPHYLOCOCCAL BACTERAEMIA [None]
